FAERS Safety Report 10051372 (Version 3)
Quarter: 2014Q2

REPORT INFORMATION
  Report Type: Spontaneous
  Country: US (occurrence: US)
  Receive Date: 20140401
  Receipt Date: 20140415
  Transmission Date: 20141212
  Serious: No
  Sender: FDA-Public Use
  Company Number: US-PFIZER INC-2014087558

PATIENT
  Age: 61 Year
  Sex: Male
  Weight: 104.34 kg

DRUGS (12)
  1. LIPITOR [Suspect]
     Indication: BLOOD CHOLESTEROL INCREASED
     Dosage: 40 MG, DAILY
     Route: 048
     Dates: start: 2012, end: 201402
  2. LIPITOR [Suspect]
     Dosage: 40 MG, 3X/WEEK
     Route: 048
     Dates: start: 201402
  3. LATUDA [Suspect]
     Indication: SCHIZOAFFECTIVE DISORDER
     Dosage: 40 MG, 1X/DAY
     Route: 048
     Dates: start: 201402, end: 201403
  4. LATUDA [Suspect]
     Indication: BIPOLAR DISORDER
     Dosage: 80 MG, DAILY (BEDTIME)
     Route: 048
     Dates: start: 201403
  5. TRILAFON [Suspect]
     Dosage: 16 MG, UNK
  6. TENORMIN [Concomitant]
     Dosage: UNK
  7. ASA [Concomitant]
     Dosage: UNK
  8. FLOMAX [Concomitant]
     Dosage: UNK
  9. PROTONIX [Concomitant]
     Dosage: UNK
  10. KLONOPIN [Concomitant]
     Dosage: UNK
  11. LISINOPRIL [Concomitant]
     Dosage: UNK
  12. PEPCID [Concomitant]
     Dosage: UNK

REACTIONS (4)
  - Drug prescribing error [Unknown]
  - Inappropriate schedule of drug administration [Unknown]
  - Blood creatine phosphokinase increased [Not Recovered/Not Resolved]
  - Tremor [Unknown]
